FAERS Safety Report 11728883 (Version 5)
Quarter: 2021Q2

REPORT INFORMATION
  Report Type: Spontaneous
  Country: US (occurrence: US)
  Receive Date: 20151112
  Receipt Date: 20210611
  Transmission Date: 20210716
  Serious: Yes (Life-Threatening, Hospitalization)
  Sender: FDA-Public Use
  Company Number: US-PFIZER INC-2015384791

PATIENT
  Age: 3 Decade
  Sex: Male
  Weight: 80 kg

DRUGS (21)
  1. CEFAZOLIN [Concomitant]
     Active Substance: CEFAZOLIN
     Dosage: 2 G, UNK
     Route: 042
  2. METRONIDAZOLE. [Suspect]
     Active Substance: METRONIDAZOLE
     Indication: APPENDICITIS
     Dosage: 500 MG, SINGLE
     Route: 042
  3. METOCLOPRAMIDE HCL [Interacting]
     Active Substance: METOCLOPRAMIDE HYDROCHLORIDE
     Indication: SEDATIVE THERAPY
     Dosage: 10 MG, SINGLE
     Route: 042
  4. FLUOXETINE [Interacting]
     Active Substance: FLUOXETINE HYDROCHLORIDE
     Dosage: 10 MG,DAILY
  5. CISATRACURIUM. [Concomitant]
     Active Substance: CISATRACURIUM
     Dosage: UNK (2?8 MG IN DIVIDED DOSES)
     Route: 042
  6. ETOMIDATE. [Concomitant]
     Active Substance: ETOMIDATE
     Dosage: 20 MG, UNK
     Route: 042
  7. GLYCOPYRROLATE /00196201/ [Concomitant]
     Active Substance: GLYCOPYRRONIUM
     Dosage: 0.6 MG, UNK
     Route: 042
  8. NEOSTIGMINE. [Concomitant]
     Active Substance: NEOSTIGMINE METHYLSULFATE
     Dosage: 5 MG, UNK
     Route: 042
  9. HALOPERIDOL. [Concomitant]
     Active Substance: HALOPERIDOL
     Dosage: 1 MG, UNK
     Route: 042
  10. FENTANYL. [Interacting]
     Active Substance: FENTANYL
     Dosage: 50 UG, UNK
     Route: 042
  11. PROPOFOL. [Concomitant]
     Active Substance: PROPOFOL
     Dosage: 100 MG, UNK
     Route: 042
  12. SEVOFLURANE. [Concomitant]
     Active Substance: SEVOFLURANE
     Dosage: UNK (2.4%?2.9% INSPIRED; OXYGEN:AIR = 1 L:1 L)
  13. DANTROLENE. [Concomitant]
     Active Substance: DANTROLENE SODIUM
     Dosage: 110 MG, (IN 2 DIVIDED DOSES)
     Route: 042
  14. ONDANSETRON [Interacting]
     Active Substance: ONDANSETRON
     Dosage: 4 MG, SINGLE
     Route: 042
  15. FENTANYL. [Interacting]
     Active Substance: FENTANYL
     Indication: PAIN
     Dosage: 100 UG, AS NEEDED
     Route: 042
  16. MIDAZOLAM. [Concomitant]
     Active Substance: MIDAZOLAM
     Indication: SEDATIVE THERAPY
     Dosage: 2 MG, UNK
     Route: 042
  17. SUCCINYLCHOLINE [Concomitant]
     Active Substance: SUCCINYLCHOLINE
     Dosage: 100 MG, UNK
     Route: 042
  18. HYDROMORPHONE [Concomitant]
     Active Substance: HYDROMORPHONE
     Dosage: 5 MG, (IN DIVIDED DOSES)
     Route: 042
  19. FLUOXETINE [Interacting]
     Active Substance: FLUOXETINE HYDROCHLORIDE
     Indication: DEPRESSION
     Dosage: 40 MG, DAILY
  20. ERTAPENEM. [Concomitant]
     Active Substance: ERTAPENEM SODIUM
     Indication: ANTIBIOTIC PROPHYLAXIS
     Dosage: UNK
  21. METHYLENE BLUE. [Interacting]
     Active Substance: METHYLENE BLUE
     Dosage: 100 MG, UNK
     Route: 042

REACTIONS (2)
  - Drug interaction [Recovered/Resolved]
  - Serotonin syndrome [Recovered/Resolved]
